FAERS Safety Report 7919842-0 (Version None)
Quarter: 2011Q4

REPORT INFORMATION
  Report Type: 
  Country: None (occurrence: None)
  Receive Date: 20111117
  Receipt Date: 20111117
  Transmission Date: 20120403
  Serious: No
  Sender: FDA-Public Use
  Company Number: None

PATIENT
  Age: 28 Year
  Sex: Female
  Weight: 70.306 kg

DRUGS (1)
  1. LANSOPRAZOLE [Suspect]
     Indication: HIATUS HERNIA
     Dosage: 30MG
     Route: 048
     Dates: start: 20111112, end: 20111115

REACTIONS (3)
  - DIZZINESS [None]
  - DYSPEPSIA [None]
  - NAUSEA [None]
